FAERS Safety Report 15391967 (Version 1)
Quarter: 2018Q3

REPORT INFORMATION
  Report Type: Spontaneous
  Country: US (occurrence: US)
  Receive Date: 20180917
  Receipt Date: 20180917
  Transmission Date: 20181010
  Serious: No
  Sender: FDA-Public Use
  Company Number: US-PFIZER INC-2018362403

PATIENT
  Age: 65 Year
  Sex: Male
  Weight: 99.79 kg

DRUGS (5)
  1. GENOTROPIN MQ [Suspect]
     Active Substance: SOMATROPIN
     Indication: CORTISOL DEFICIENCY
     Dosage: UNK UNK, 1X/DAY (0.4 ONE INJECTION AT NIGHT)
     Dates: end: 201805
  2. COREG [Concomitant]
     Active Substance: CARVEDILOL
     Indication: HEART RATE ABNORMAL
     Dosage: UNK
  3. LISINOPRIL. [Concomitant]
     Active Substance: LISINOPRIL
     Indication: HEART RATE IRREGULAR
     Dosage: UNK
  4. LEVOTHYROXINE. [Concomitant]
     Active Substance: LEVOTHYROXINE
     Dosage: UNK
  5. GENOTROPIN MQ [Suspect]
     Active Substance: SOMATROPIN
     Indication: PITUITARY TUMOUR REMOVAL
     Dosage: 1.04 MG, 1X/DAY (AT NIGHT ONCE A DAY)
     Dates: start: 2007, end: 201805

REACTIONS (6)
  - Asthenia [Unknown]
  - Product use in unapproved indication [Unknown]
  - Fatigue [Unknown]
  - Epigastric discomfort [Unknown]
  - Malaise [Unknown]
  - Abdominal discomfort [Unknown]

NARRATIVE: CASE EVENT DATE: 2007
